FAERS Safety Report 7247403-8 (Version None)
Quarter: 2011Q1

REPORT INFORMATION
  Report Type: 
  Country: None (occurrence: None)
  Receive Date: 20110127
  Receipt Date: 20110118
  Transmission Date: 20110831
  Serious: Yes (Other)
  Sender: FDA-Public Use
  Company Number: PHHY2011CA04972

PATIENT
  Sex: Female

DRUGS (1)
  1. SANDOSTATIN LAR [Suspect]
     Indication: METASTATIC CARCINOID TUMOUR
     Dosage: 40 MG ONCE A MONTH
     Route: 030
     Dates: start: 20090325

REACTIONS (5)
  - MUSCULAR WEAKNESS [None]
  - BALANCE DISORDER [None]
  - VISION BLURRED [None]
  - HERPES ZOSTER [None]
  - PARAESTHESIA [None]
